FAERS Safety Report 5787175-7 (Version None)
Quarter: 2008Q2

REPORT INFORMATION
  Report Type: 
  Country: None (occurrence: None)
  Receive Date: 20080625
  Receipt Date: 20080514
  Transmission Date: 20081010
  Serious: No
  Sender: FDA-Public Use
  Company Number: US-BAUSCH-2008BL002174

PATIENT
  Age: 61 Year
  Sex: Female
  Weight: 77 kg

DRUGS (3)
  1. ALAWAY [Suspect]
     Indication: HYPERSENSITIVITY
     Route: 047
     Dates: start: 20080501, end: 20080501
  2. CLARITIN /USA/ [Concomitant]
  3. EVISTA [Concomitant]
     Indication: OSTEOPOROSIS
     Dates: start: 20050101

REACTIONS (1)
  - PHOTOPSIA [None]
